FAERS Safety Report 5880404-0 (Version None)
Quarter: 2008Q3

REPORT INFORMATION
  Report Type: 
  Country: None (occurrence: None)
  Receive Date: 20080912
  Receipt Date: 20080724
  Transmission Date: 20090109
  Serious: No
  Sender: FDA-Public Use
  Company Number: US-ABBOTT-08P-163-0433855-00

PATIENT
  Sex: Female
  Weight: 46.762 kg

DRUGS (3)
  1. HUMIRA [Suspect]
     Indication: CROHN'S DISEASE
     Route: 058
     Dates: start: 20050103, end: 20071001
  2. PREDNISONE TAB [Concomitant]
     Indication: CROHN'S DISEASE
     Route: 048
     Dates: start: 19930101
  3. IRON SUPPLEMENT [Concomitant]
     Indication: MINERAL SUPPLEMENTATION
     Route: 048

REACTIONS (3)
  - ABSCESS [None]
  - INTESTINAL FISTULA [None]
  - URINARY TRACT INFECTION [None]
